FAERS Safety Report 6067444-6 (Version None)
Quarter: 2009Q1

REPORT INFORMATION
  Report Type: 
  Country: None (occurrence: None)
  Receive Date: 20090205
  Receipt Date: 20090123
  Transmission Date: 20090719
  Serious: Yes (Hospitalization, Other)
  Sender: FDA-Public Use
  Company Number: US-PFIZER INC-2007084958

PATIENT
  Sex: Female
  Weight: 92.063 kg

DRUGS (2)
  1. BEXTRA [Suspect]
     Dosage: 10 MG, 1X/DAY
     Route: 048
  2. HYDROCHLOROTHIAZIDE [Suspect]

REACTIONS (1)
  - DERMATITIS EXFOLIATIVE GENERALISED [None]
